FAERS Safety Report 21603794 (Version 1)
Quarter: 2022Q4

REPORT INFORMATION
  Report Type: Spontaneous
  Country: US (occurrence: US)
  Receive Date: 20221116
  Receipt Date: 20221116
  Transmission Date: 20230112
  Serious: Yes (Other)
  Sender: FDA-Public Use
  Company Number: US-BAYER-2022A154934

PATIENT
  Age: 66 Year
  Sex: Female

DRUGS (3)
  1. STIVARGA [Suspect]
     Active Substance: REGORAFENIB
     Dosage: 160 MG, QD
     Dates: start: 2020
  2. STIVARGA [Suspect]
     Active Substance: REGORAFENIB
     Dosage: 80 MG, QD
  3. ATORVASTATIN [Concomitant]
     Active Substance: ATORVASTATIN
     Dosage: UNK

REACTIONS (7)
  - Cough [None]
  - Swelling face [None]
  - Liver function test increased [None]
  - Palmar-plantar erythrodysaesthesia syndrome [None]
  - Dizziness [Recovering/Resolving]
  - Fatigue [Recovering/Resolving]
  - Laryngitis [Recovering/Resolving]

NARRATIVE: CASE EVENT DATE: 20221022
